FAERS Safety Report 10239676 (Version 2)
Quarter: 2014Q2

REPORT INFORMATION
  Report Type: Spontaneous
  Country: DK (occurrence: GL)
  Receive Date: 20140616
  Receipt Date: 20140630
  Transmission Date: 20141212
  Serious: Yes (Death)
  Sender: FDA-Public Use
  Company Number: DK-ABBVIE-14P-044-1248210-00

PATIENT
  Age: 6 Week
  Sex: Male

DRUGS (1)
  1. KLACID [Suspect]
     Indication: PNEUMONIA
     Route: 048
     Dates: start: 201205

REACTIONS (1)
  - Drug ineffective [Fatal]
